FAERS Safety Report 15081768 (Version 1)
Quarter: 2018Q2

REPORT INFORMATION
  Report Type: Spontaneous
  Country: US (occurrence: US)
  Receive Date: 20180628
  Receipt Date: 20180628
  Transmission Date: 20180711
  Serious: No
  Sender: FDA-Public Use
  Company Number: US-PFIZER INC-2018258430

PATIENT
  Age: 59 Year
  Sex: Female
  Weight: 77.11 kg

DRUGS (1)
  1. LYRICA [Suspect]
     Active Substance: PREGABALIN
     Indication: DIABETIC NEUROPATHY
     Dosage: 75 MG CAPSULE BY MOUTH 2 TIMES PER DAY
     Route: 048

REACTIONS (3)
  - Intentional product misuse [Unknown]
  - Pain in extremity [Unknown]
  - Drug ineffective [Unknown]
